FAERS Safety Report 6674879-7 (Version None)
Quarter: 2010Q2

REPORT INFORMATION
  Report Type: 
  Country: None (occurrence: None)
  Receive Date: 20100409
  Receipt Date: 20100331
  Transmission Date: 20101027
  Serious: Yes (Other)
  Sender: FDA-Public Use
  Company Number: US-SANOFI-AVENTIS-2010SA019719

PATIENT
  Sex: Female

DRUGS (1)
  1. TAXOTERE [Suspect]
     Route: 042

REACTIONS (1)
  - DEFORMITY [None]
